FAERS Safety Report 9373303 (Version 2)
Quarter: 2013Q3

REPORT INFORMATION
  Report Type: Spontaneous
  Country: FR (occurrence: FR)
  Receive Date: 20130627
  Receipt Date: 20130710
  Transmission Date: 20140515
  Serious: Yes (Death)
  Sender: FDA-Public Use
  Company Number: FR-TEVA-415632ISR

PATIENT
  Sex: Male

DRUGS (4)
  1. FUROSEMIDE TEVA 40 MG SCORED TABLET [Suspect]
     Indication: HYPERTENSION
     Route: 048
  2. DEROXAT [Concomitant]
     Indication: DEPRESSION
     Dosage: 20 MILLIGRAM DAILY;
  3. SERESTA 10MG [Concomitant]
     Indication: DEPRESSION
     Dosage: ON REQUEST
  4. ANTIVITAMIN K NOS [Concomitant]

REACTIONS (3)
  - Asthenia [Fatal]
  - Fall [Fatal]
  - Haemorrhage [Fatal]
